FAERS Safety Report 17508206 (Version 1)
Quarter: 2020Q1

REPORT INFORMATION
  Report Type: Spontaneous
  Country: US (occurrence: US)
  Receive Date: 20200305
  Receipt Date: 20200305
  Transmission Date: 20200409
  Serious: No
  Sender: FDA-Public Use
  Company Number: US-AMGEN-USASP2020036761

PATIENT
  Sex: Female

DRUGS (1)
  1. CORLANOR [Suspect]
     Active Substance: IVABRADINE HYDROCHLORIDE
     Indication: POSTURAL ORTHOSTATIC TACHYCARDIA SYNDROME
     Dosage: 7.5 MILLIGRAM, BID
     Route: 065

REACTIONS (5)
  - Cough [Unknown]
  - Off label use [Unknown]
  - Tachycardia [Unknown]
  - Chest discomfort [Unknown]
  - Flushing [Unknown]
